FAERS Safety Report 26154845 (Version 1)
Quarter: 2025Q4

REPORT INFORMATION
  Report Type: Spontaneous
  Country: CA (occurrence: CA)
  Receive Date: 20251215
  Receipt Date: 20251215
  Transmission Date: 20260118
  Serious: Yes (Other)
  Sender: AUROBINDO
  Company Number: CA-AUROBINDO-AUR-APL-2025-062902

PATIENT
  Age: 71 Year
  Sex: Female

DRUGS (3)
  1. SIMVASTATIN [Suspect]
     Active Substance: SIMVASTATIN
     Indication: Marginal zone lymphoma
     Dosage: UNK
     Route: 065
  2. IBRUTINIB [Suspect]
     Active Substance: IBRUTINIB
     Indication: Marginal zone lymphoma
     Dosage: UNK
     Route: 065
  3. BRUKINSA [Suspect]
     Active Substance: ZANUBRUTINIB
     Indication: Marginal zone lymphoma
     Dosage: 320 MILLIGRAM, ONCE A DAY
     Route: 061

REACTIONS (3)
  - Uterine infection [Unknown]
  - Nephrolithiasis [Unknown]
  - Contusion [Unknown]
